FAERS Safety Report 5987076-5 (Version None)
Quarter: 2008Q4

REPORT INFORMATION
  Report Type: 
  Country: None (occurrence: None)
  Receive Date: 20081209
  Receipt Date: 20080512
  Transmission Date: 20090506
  Serious: No
  Sender: FDA-Public Use
  Company Number: A0727453A

PATIENT
  Age: 69 Year
  Sex: Male

DRUGS (9)
  1. AVANDAMET [Suspect]
     Dosage: 1TAB THREE TIMES PER DAY
     Route: 048
     Dates: end: 20080501
  2. AVANDIA [Suspect]
     Route: 048
  3. DIOVAN [Concomitant]
  4. TOPROL-XL [Concomitant]
  5. SIMVASTATIN [Concomitant]
  6. PANTOPRAZOLE SODIUM [Concomitant]
  7. FUROSEMIDE [Concomitant]
  8. FEXOFENADINE [Concomitant]
  9. ASPIRIN [Concomitant]

REACTIONS (1)
  - BLOOD GLUCOSE INCREASED [None]
